FAERS Safety Report 6147850-1 (Version None)
Quarter: 2009Q2

REPORT INFORMATION
  Report Type: 
  Country: None (occurrence: None)
  Receive Date: 20090402
  Receipt Date: 20090323
  Transmission Date: 20091009
  Serious: Yes (Other)
  Sender: FDA-Public Use
  Company Number: 1000005544

PATIENT
  Age: 92 Year
  Sex: Male

DRUGS (7)
  1. MEMANTINE HCL [Suspect]
     Indication: DEMENTIA ALZHEIMER'S TYPE
     Dosage: 5 MG (5MG, 1 IN 1 D), ORAL
     Route: 048
     Dates: start: 20081121, end: 20080101
  2. MEMANTINE HCL [Suspect]
     Indication: DEMENTIA ALZHEIMER'S TYPE
     Dosage: 10 MG (10 MG, 1 IN 1 D), ORAL
     Route: 048
     Dates: start: 20080101, end: 20081216
  3. ARICEPT [Suspect]
     Dates: end: 20081124
  4. LEVOTHYROXINE SODIUM [Concomitant]
  5. LAMICTAL [Concomitant]
  6. PROSCAR [Concomitant]
  7. LAXATIVE [Concomitant]

REACTIONS (3)
  - EPILEPSY [None]
  - MALAISE [None]
  - SINUS BRADYCARDIA [None]
